FAERS Safety Report 23232256 (Version 1)
Quarter: 2023Q4

REPORT INFORMATION
  Report Type: Spontaneous
  Country: FR (occurrence: FR)
  Receive Date: 20231127
  Receipt Date: 20231127
  Transmission Date: 20240110
  Serious: Yes (Hospitalization, Other)
  Sender: FDA-Public Use
  Company Number: None

PATIENT
  Age: 79 Year
  Sex: Male
  Weight: 80 kg

DRUGS (6)
  1. ELIQUIS [Suspect]
     Active Substance: APIXABAN
     Indication: Phlebitis
     Route: 048
     Dates: end: 20231022
  2. ALGINIC ACID\ALUMINUM HYDROXIDE\SODIUM ALGINATE\SODIUM BICARBONATE [Concomitant]
     Active Substance: ALGINIC ACID\ALUMINUM HYDROXIDE\SODIUM ALGINATE\SODIUM BICARBONATE
     Indication: Product used for unknown indication
     Route: 048
  3. LEVOTHYROXINE [Concomitant]
     Active Substance: LEVOTHYROXINE
     Indication: Product used for unknown indication
     Route: 048
  4. PANTOPRAZOLE [Concomitant]
     Active Substance: PANTOPRAZOLE
     Indication: Product used for unknown indication
     Route: 048
  5. HYDROCHLOROTHIAZIDE [Concomitant]
     Active Substance: HYDROCHLOROTHIAZIDE
     Indication: Product used for unknown indication
     Route: 048
  6. EXFORGE [Concomitant]
     Active Substance: AMLODIPINE BESYLATE\VALSARTAN
     Indication: Product used for unknown indication
     Route: 048

REACTIONS (1)
  - Subcapsular renal haematoma [Recovering/Resolving]

NARRATIVE: CASE EVENT DATE: 20231022
